FAERS Safety Report 7113744-8 (Version None)
Quarter: 2010Q4

REPORT INFORMATION
  Report Type: 
  Country: None (occurrence: None)
  Receive Date: 20101119
  Receipt Date: 20091202
  Transmission Date: 20110411
  Serious: Yes (Hospitalization)
  Sender: FDA-Public Use
  Company Number: US-JNJFOC-20091201881

PATIENT
  Sex: Female
  Weight: 90.72 kg

DRUGS (8)
  1. SIMPONI [Suspect]
     Indication: PSORIATIC ARTHROPATHY
     Dosage: RECEIVED 1 DOSE
     Route: 058
  2. INFLIXIMAB [Suspect]
     Indication: PSORIASIS
     Route: 042
  3. LEVEMIR [Concomitant]
  4. ZOLPIDEM [Concomitant]
  5. LASIX [Concomitant]
  6. LASIX [Concomitant]
  7. POTASSIUM CHLORIDE [Concomitant]
     Route: 048
  8. SPIRONOLACTONE [Concomitant]
     Route: 048

REACTIONS (9)
  - BLOOD PRESSURE DECREASED [None]
  - BRONCHIECTASIS [None]
  - COR PULMONALE [None]
  - DERMATITIS EXFOLIATIVE [None]
  - HAEMOPTYSIS [None]
  - RENAL FAILURE ACUTE [None]
  - RESPIRATORY TRACT INFECTION [None]
  - SQUAMOUS CELL CARCINOMA [None]
  - SQUAMOUS CELL CARCINOMA OF SKIN [None]
